FAERS Safety Report 17087296 (Version 1)
Quarter: 2019Q4

REPORT INFORMATION
  Report Type: Spontaneous
  Country: US (occurrence: US)
  Receive Date: 20191128
  Receipt Date: 20191128
  Transmission Date: 20200122
  Serious: Yes (Hospitalization)
  Sender: FDA-Public Use
  Company Number: US-IPSEN BIOPHARMACEUTICALS, INC.-2011-0522

PATIENT
  Age: 18 Year
  Sex: Male
  Weight: 35.38 kg

DRUGS (5)
  1. MERCAPTOPURINE. [Concomitant]
     Active Substance: MERCAPTOPURINE
  2. FLAGYL [Concomitant]
     Active Substance: METRONIDAZOLE\METRONIDAZOLE HYDROCHLORIDE
     Indication: CROHN^S DISEASE
  3. HUMIRA [Concomitant]
     Active Substance: ADALIMUMAB
     Indication: CROHN^S DISEASE
  4. ENDOCORTE INHALER [Concomitant]
     Indication: CROHN^S DISEASE
     Route: 055
  5. INCRELEX [Suspect]
     Active Substance: MECASERMIN
     Indication: INSULIN-LIKE GROWTH FACTOR DECREASED
     Dosage: ADJUSTED UP TO 120MCG/KG OVER TIME
     Route: 065
     Dates: start: 20071019, end: 20081110

REACTIONS (2)
  - T-cell lymphoma [Not Recovered/Not Resolved]
  - Drug ineffective [Unknown]

NARRATIVE: CASE EVENT DATE: 20110210
